FAERS Safety Report 6427650-5 (Version None)
Quarter: 2009Q4

REPORT INFORMATION
  Report Type: 
  Country: None (occurrence: None)
  Receive Date: 20091104
  Receipt Date: 20091021
  Transmission Date: 20100525
  Serious: Yes (Hospitalization)
  Sender: FDA-Public Use
  Company Number: NL-GENENTECH-293109

PATIENT
  Sex: Male

DRUGS (4)
  1. BEVACIZUMAB [Suspect]
     Indication: COLORECTAL CANCER
     Dosage: 600 MG, UNK
     Route: 042
     Dates: start: 20090510
  2. CAPECITABINE [Suspect]
     Indication: COLORECTAL CANCER
     Dosage: 3000 MG, UNK
     Route: 048
     Dates: start: 20090510
  3. OXALIPLATIN [Suspect]
     Indication: COLORECTAL CANCER
     Dosage: 250 MG, UNK
     Route: 042
     Dates: start: 20090510
  4. OMNIC [Concomitant]
     Indication: DRUG USE FOR UNKNOWN INDICATION

REACTIONS (2)
  - PYREXIA [None]
  - THROMBOCYTOPENIA [None]
